FAERS Safety Report 9410746 (Version 4)
Quarter: 2013Q3

REPORT INFORMATION
  Report Type: Spontaneous
  Country: JP (occurrence: JP)
  Receive Date: 20130719
  Receipt Date: 20130909
  Transmission Date: 20140515
  Serious: Yes (Other)
  Sender: FDA-Public Use
  Company Number: JP-ABBOTT-13P-087-1122036-00

PATIENT
  Age: 21 Year
  Sex: Male
  Weight: 51.1 kg

DRUGS (17)
  1. HUMIRA [Suspect]
     Indication: COLITIS ULCERATIVE
     Route: 058
     Dates: start: 20130712, end: 20130712
  2. HUMIRA [Suspect]
  3. HUMIRA [Suspect]
  4. MESALAZINE [Concomitant]
     Indication: COLITIS ULCERATIVE
     Route: 048
  5. MESALAZINE [Concomitant]
     Route: 048
     Dates: start: 20120319
  6. AZATHIOPRINE [Concomitant]
     Indication: COLITIS ULCERATIVE
     Route: 048
     Dates: start: 20120319
  7. PREDNISOLONE [Concomitant]
     Indication: COLITIS ULCERATIVE
     Route: 042
     Dates: start: 20130611, end: 20130613
  8. PREDNISOLONE [Concomitant]
     Dates: start: 20130614, end: 20130617
  9. PREDNISOLONE [Concomitant]
     Dates: start: 20130618, end: 20130621
  10. PREDNISOLONE [Concomitant]
     Route: 048
     Dates: start: 20130622, end: 20130626
  11. PREDNISOLONE [Concomitant]
     Dates: start: 20130627, end: 20130704
  12. PREDNISOLONE [Concomitant]
     Route: 042
     Dates: start: 20130705, end: 20130716
  13. PREDNISOLONE [Concomitant]
     Dates: start: 20130717, end: 20130722
  14. PREDNISOLONE [Concomitant]
     Dates: start: 20130723, end: 20130731
  15. PREDNISOLONE [Concomitant]
     Route: 048
     Dates: start: 20130801
  16. TOTAL PARENTAL NUTRITION (TPN) [Concomitant]
     Indication: PRODUCT USED FOR UNKNOWN INDICATION
  17. INFLIXIMAB [Concomitant]
     Indication: PRODUCT USED FOR UNKNOWN INDICATION

REACTIONS (9)
  - Convulsion [Recovered/Resolved]
  - Tachypnoea [Unknown]
  - Trismus [Unknown]
  - Abdominal pain [Unknown]
  - Lip disorder [Recovering/Resolving]
  - Muscle tightness [Unknown]
  - Blood alkaline phosphatase increased [Unknown]
  - Melaena [Recovered/Resolved]
  - Pain [Unknown]
